FAERS Safety Report 7157997-9 (Version None)
Quarter: 2010Q4

REPORT INFORMATION
  Report Type: 
  Country: None (occurrence: None)
  Receive Date: 20101214
  Receipt Date: 20100419
  Transmission Date: 20110411
  Serious: No
  Sender: FDA-Public Use
  Company Number: US-ASTRAZENECA-2010SE17376

PATIENT
  Sex: Female
  Weight: 86.2 kg

DRUGS (4)
  1. CRESTOR [Suspect]
     Route: 048
  2. AMITRIPTYLINE [Concomitant]
  3. ATENOLOL [Concomitant]
  4. TIMOPTIC [Concomitant]

REACTIONS (1)
  - PHARYNGEAL OEDEMA [None]
